FAERS Safety Report 9722698 (Version 1)
Quarter: 2013Q2

REPORT INFORMATION
  Report Type: Spontaneous
  Country: US (occurrence: None)
  Receive Date: 20130606
  Receipt Date: 20130606
  Transmission Date: 20140414
  Serious: Yes (Other)
  Sender: FDA-Public Use
  Company Number: 95104

PATIENT
  Age: 33 Year
  Sex: Female
  Weight: 52.16 kg

DRUGS (2)
  1. MENTHOL [Suspect]
     Indication: PAIN
     Dosage: 1PATCH OVERNIGHT TOPICAL
     Route: 061
     Dates: start: 20130420, end: 20130421
  2. MESALAMINE [Concomitant]

REACTIONS (4)
  - Application site erythema [None]
  - Application site irritation [None]
  - Application site rash [None]
  - Application site urticaria [None]
